FAERS Safety Report 15377146 (Version 1)
Quarter: 2018Q3

REPORT INFORMATION
  Report Type: Spontaneous
  Country: US (occurrence: US)
  Receive Date: 20180905
  Receipt Date: 20180905
  Transmission Date: 20181010
  Serious: Yes (Hospitalization, Other)
  Sender: FDA-Public Use
  Company Number: None

PATIENT
  Age: 51 Year
  Sex: Female
  Weight: 56.25 kg

DRUGS (4)
  1. GAMMAGUARD [Concomitant]
  2. DOXYCYCLINE. [Concomitant]
     Active Substance: DOXYCYCLINE
  3. CLARITIN D AND MAGNESIUM CITRATE [Concomitant]
  4. CVS HEALTH STERILE SALINE NASAL MIST SODIUM CHLORIDE 0.9% [Suspect]
     Active Substance: SODIUM CHLORIDE
     Indication: MULTIPLE ALLERGIES
     Route: 061
     Dates: start: 20170518, end: 20180831

REACTIONS (5)
  - Malaise [None]
  - Product use issue [None]
  - Application site infection [None]
  - Sinusitis [None]
  - Pseudomonas test positive [None]

NARRATIVE: CASE EVENT DATE: 20170812
